FAERS Safety Report 22140466 (Version 1)
Quarter: 2023Q1

REPORT INFORMATION
  Report Type: Spontaneous
  Country: US (occurrence: None)
  Receive Date: 20230323
  Receipt Date: 20230323
  Transmission Date: 20230417
  Serious: Yes (Death)
  Sender: FDA-Public Use
  Company Number: None

PATIENT
  Age: 87 Year
  Sex: Female
  Weight: 114.8 kg

DRUGS (18)
  1. LENALIDOMIDE [Suspect]
     Active Substance: LENALIDOMIDE
     Indication: Mantle cell lymphoma
     Dosage: OTHER FREQUENCY : 21DON7DOFF;?
     Route: 048
     Dates: start: 202302, end: 20230318
  2. ACETAMINOPHEN [Concomitant]
  3. ACYCLOVIR [Concomitant]
  4. ALLOPURINOL [Concomitant]
     Active Substance: ALLOPURINOL
  5. FINASTERIDE [Concomitant]
  6. FLUTICASONE-SALMETEROL [Concomitant]
  7. FUROSEMIDE [Concomitant]
  8. HYDROCODONE-IBUPROFEN [Concomitant]
  9. HYDROXYZINE [Concomitant]
  10. LASIX [Concomitant]
  11. METOPROLOL [Concomitant]
     Active Substance: METOPROLOL
  12. MUCINEX [Concomitant]
  13. POTASSIUM CHLORIDE ER [Concomitant]
  14. PRALUENT [Concomitant]
  15. SENNA [Concomitant]
  16. SILDENAFIL CITRATE [Concomitant]
  17. TAMSULOSIN [Concomitant]
  18. XARELTO [Concomitant]

REACTIONS (1)
  - Death [None]

NARRATIVE: CASE EVENT DATE: 20230318
